FAERS Safety Report 9394323 (Version 1)
Quarter: 2013Q3

REPORT INFORMATION
  Report Type: Report from Study
  Country: US (occurrence: US)
  Receive Date: 20130711
  Receipt Date: 20130711
  Transmission Date: 20140515
  Serious: Yes (Hospitalization, Other)
  Sender: FDA-Public Use
  Company Number: US-ROCHE-1246974

PATIENT
  Age: 52 Year
  Sex: Female
  Weight: 155 kg

DRUGS (2)
  1. XOLAIR [Suspect]
     Indication: ASTHMA
     Route: 042
  2. ZYRTEC [Concomitant]
     Indication: ASTHMA
     Route: 048
     Dates: start: 2012

REACTIONS (4)
  - Pneumonia [Recovered/Resolved]
  - Influenza like illness [Not Recovered/Not Resolved]
  - Feeling abnormal [Unknown]
  - Chronic obstructive pulmonary disease [Unknown]
